FAERS Safety Report 5522521-0 (Version None)
Quarter: 2007Q4

REPORT INFORMATION
  Report Type: 
  Country: None (occurrence: None)
  Receive Date: 20071120
  Receipt Date: 20071108
  Transmission Date: 20080405
  Serious: Yes (Other)
  Sender: FDA-Public Use
  Company Number: FR-PFIZER INC-2007076898

PATIENT
  Sex: Male
  Weight: 70 kg

DRUGS (8)
  1. LYRICA [Suspect]
     Indication: SCIATICA
  2. TRAMADOL HCL [Concomitant]
     Indication: SCIATICA
     Route: 048
  3. GLUCOVANCE [Concomitant]
  4. CADUET [Concomitant]
     Route: 048
  5. COVERSYL [Concomitant]
     Route: 048
  6. TAMSULOSIN HCL [Concomitant]
  7. LEXOMIL [Concomitant]
     Route: 048
  8. PLAVIX [Concomitant]

REACTIONS (4)
  - ATRIAL FIBRILLATION [None]
  - CARDIAC FAILURE [None]
  - LEFT VENTRICULAR HYPERTROPHY [None]
  - MITRAL VALVE INCOMPETENCE [None]
